FAERS Safety Report 5315122-0 (Version None)
Quarter: 2007Q2

REPORT INFORMATION
  Report Type: 
  Country: None (occurrence: None)
  Receive Date: 20070427
  Receipt Date: 20060416
  Transmission Date: 20071010
  Serious: Yes (Other)
  Sender: FDA-Public Use
  Company Number: B0467535A

PATIENT
  Age: 29 Year
  Sex: Female

DRUGS (1)
  1. BUPROPION HCL [Suspect]
     Indication: EX-SMOKER

REACTIONS (7)
  - NEUTROPHILIA [None]
  - OEDEMA PERIPHERAL [None]
  - POLYARTHRITIS [None]
  - SERUM SICKNESS [None]
  - URTICARIA [None]
  - VOMITING [None]
  - WHITE BLOOD CELL COUNT INCREASED [None]
